FAERS Safety Report 15175838 (Version 1)
Quarter: 2018Q3

REPORT INFORMATION
  Report Type: Spontaneous
  Country: FR (occurrence: FR)
  Receive Date: 20180720
  Receipt Date: 20180720
  Transmission Date: 20181010
  Serious: Yes (Congenital Anomaly)
  Sender: FDA-Public Use
  Company Number: FR-MIDATECHPHARMA-2018-FR-000092

PATIENT
  Age: 19 Week
  Sex: Female

DRUGS (1)
  1. TAMOXIFEN (NON?SPECIFIC) [Suspect]
     Active Substance: TAMOXIFEN
     Route: 015

REACTIONS (2)
  - Enlarged clitoris [Not Recovered/Not Resolved]
  - Congenital genitourinary abnormality [Not Recovered/Not Resolved]
